FAERS Safety Report 24974297 (Version 1)
Quarter: 2025Q1

REPORT INFORMATION
  Report Type: Spontaneous
  Country: US (occurrence: US)
  Receive Date: 20250217
  Receipt Date: 20250217
  Transmission Date: 20250408
  Serious: Yes (Hospitalization, Other)
  Sender: BRISTOL-MYERS SQUIBB COMPANY
  Company Number: US-BRISTOL-MYERS SQUIBB COMPANY-2025-022130

PATIENT
  Age: 88 Year
  Sex: Male

DRUGS (1)
  1. REVLIMID [Suspect]
     Active Substance: LENALIDOMIDE
     Indication: Myelodysplastic syndrome
     Dosage: FREQUENCY-TAKE 1 CAPSULE BY MOUTH 1-TIME A DAY FOR 21 DAYS ON THEN 7 DAYS OF
     Route: 048
     Dates: start: 202501

REACTIONS (2)
  - Pulmonary embolism [Unknown]
  - Off label use [Unknown]
